FAERS Safety Report 23698324 (Version 2)
Quarter: 2024Q2

REPORT INFORMATION
  Report Type: Spontaneous
  Country: IT (occurrence: IT)
  Receive Date: 20240402
  Receipt Date: 20240619
  Transmission Date: 20240716
  Serious: Yes (Other)
  Sender: FDA-Public Use
  Company Number: IT-ABBVIE-5702763

PATIENT
  Sex: Male

DRUGS (1)
  1. ASENAPINE MALEATE [Suspect]
     Active Substance: ASENAPINE MALEATE
     Indication: Product used for unknown indication
     Dosage: 20 MILLIGRAM?FORM STRENGTH: 10 MILLIGRAM
     Route: 048
     Dates: start: 2020

REACTIONS (3)
  - Eosinophilic colitis [Unknown]
  - Drug interaction [Unknown]
  - Thirst [Unknown]

NARRATIVE: CASE EVENT DATE: 20200101
